FAERS Safety Report 11400125 (Version 1)
Quarter: 2015Q3

REPORT INFORMATION
  Report Type: Report from Study
  Country: DE (occurrence: DE)
  Receive Date: 20150820
  Receipt Date: 20150820
  Transmission Date: 20151125
  Serious: Yes (Other)
  Sender: FDA-Public Use
  Company Number: DE-INCYTE CORPORATION-2015IN003944

PATIENT
  Sex: Female
  Weight: 75 kg

DRUGS (8)
  1. INCB018424 [Suspect]
     Active Substance: RUXOLITINIB
     Indication: MYELOFIBROSIS
     Dosage: 30 MG, QD (2 X 15 MG TABLETS)
     Route: 048
     Dates: start: 20150305, end: 20150602
  2. DECORTIN [Concomitant]
     Active Substance: PREDNISONE
     Indication: CUTANEOUS LUPUS ERYTHEMATOSUS
     Dosage: 5 MG, QD
     Route: 065
  3. INCB018424 [Suspect]
     Active Substance: RUXOLITINIB
     Dosage: 20 MG, QD (2 X 10 MG TABLET)
     Route: 048
     Dates: start: 20150603
  4. QUENSYL [Concomitant]
     Active Substance: HYDROXYCHLOROQUINE
     Indication: CUTANEOUS LUPUS ERYTHEMATOSUS
     Dosage: 100 MG, QD
     Route: 065
  5. METOPROLOL [Concomitant]
     Active Substance: METOPROLOL
     Indication: HYPERTENSION
     Dosage: 50 MG, QD
     Route: 065
  6. PANTOPRAZOLE [Concomitant]
     Active Substance: PANTOPRAZOLE SODIUM
     Indication: PROPHYLAXIS
     Dosage: 40 UNK, UNK
     Route: 065
  7. L-THYROXIN [Concomitant]
     Active Substance: LEVOTHYROXINE SODIUM
     Indication: THYROID OPERATION
     Dosage: 75 UG, QD
     Route: 065
  8. HUMALOG MIX 50/50 PEN [Concomitant]
     Indication: DIABETES MELLITUS
     Dosage: QD, PRN
     Route: 065

REACTIONS (2)
  - Renal failure [Not Recovered/Not Resolved]
  - Haemoglobin decreased [Not Recovered/Not Resolved]

NARRATIVE: CASE EVENT DATE: 20150603
